FAERS Safety Report 11241781 (Version 4)
Quarter: 2015Q3

REPORT INFORMATION
  Report Type: Spontaneous
  Country: PL (occurrence: PL)
  Receive Date: 20150706
  Receipt Date: 20150716
  Transmission Date: 20151125
  Serious: Yes (Hospitalization)
  Sender: FDA-Public Use
  Company Number: PHHY2015PL077796

PATIENT
  Age: 73 Year
  Sex: Male

DRUGS (13)
  1. PARACETAMOL [Suspect]
     Active Substance: ACETAMINOPHEN
     Indication: BREAKTHROUGH PAIN
     Dosage: 3 G, QD
     Route: 065
  2. TRAMADOL+PARACETAMOL [Suspect]
     Active Substance: ACETAMINOPHEN\TRAMADOL
     Indication: BREAKTHROUGH PAIN
     Route: 065
  3. MORPHINE [Suspect]
     Active Substance: MORPHINE
     Indication: BREAKTHROUGH PAIN
     Route: 065
  4. GOSERELIN [Concomitant]
     Active Substance: GOSERELIN
     Indication: PROSTATE CANCER
     Route: 065
  5. ZOLEDRONIC ACID [Concomitant]
     Active Substance: ZOLEDRONIC ACID
     Indication: PAIN IN EXTREMITY
     Route: 065
  6. ZOLEDRONIC ACID [Concomitant]
     Active Substance: ZOLEDRONIC ACID
     Indication: PELVIC PAIN
  7. KETOPROFEN. [Suspect]
     Active Substance: KETOPROFEN
     Indication: BREAKTHROUGH PAIN
     Dosage: 100 MG, Q8H
     Route: 065
  8. MIANSERIN [Suspect]
     Active Substance: MIANSERIN
     Indication: BREAKTHROUGH PAIN
     Dosage: 10 MG, UNK
     Route: 065
  9. OXYCOD//OXYCODONE HYDROCHLORIDE [Concomitant]
     Dosage: 20 MG, Q12H
     Route: 065
  10. BUPRENORPHINE. [Suspect]
     Active Substance: BUPRENORPHINE
     Indication: BREAKTHROUGH PAIN
     Dosage: 52.5 UG/HR, UNK
     Route: 062
  11. OXYCOD//OXYCODONE HYDROCHLORIDE [Concomitant]
     Dosage: 5 MG, UNK
     Route: 048
  12. FENTANYL. [Suspect]
     Active Substance: FENTANYL
     Indication: BREAKTHROUGH PAIN
     Dosage: 100 UG/HR, UNK
     Route: 062
  13. OXYCOD//OXYCODONE HYDROCHLORIDE [Concomitant]
     Indication: PRODUCT USED FOR UNKNOWN INDICATION
     Dosage: 10 MG, Q12H
     Route: 065

REACTIONS (7)
  - Paraesthesia [Recovered/Resolved]
  - Condition aggravated [Recovered/Resolved]
  - Drug ineffective [Recovered/Resolved]
  - Burning sensation [Recovered/Resolved]
  - Nausea [Unknown]
  - Musculoskeletal stiffness [Recovered/Resolved]
  - Vomiting [Unknown]
